FAERS Safety Report 6458835-X (Version None)
Quarter: 2009Q4

REPORT INFORMATION
  Report Type: 
  Country: None (occurrence: None)
  Receive Date: 20091123
  Receipt Date: 20091109
  Transmission Date: 20100525
  Serious: Yes (Hospitalization)
  Sender: FDA-Public Use
  Company Number: 2009AL007136

PATIENT
  Age: 45 Year
  Sex: Female
  Weight: 72.1219 kg

DRUGS (2)
  1. HYDROCHLOROTHIAZIDE [Suspect]
     Indication: HYPERTENSION
     Dosage: 25 MG; QD;
  2. RAMIPRIL CAPSULES [Suspect]
     Indication: HYPERTENSION
     Dosage: 5 MG; QD;

REACTIONS (11)
  - ENCEPHALOPATHY [None]
  - HYPOKALAEMIA [None]
  - HYPONATRAEMIA [None]
  - MALAISE [None]
  - METABOLIC ALKALOSIS [None]
  - PHYTOTHERAPY [None]
  - RESPIRATORY RATE INCREASED [None]
  - RHABDOMYOLYSIS [None]
  - THIRST [None]
  - TREMOR [None]
  - VISION BLURRED [None]
